FAERS Safety Report 6680231-0 (Version None)
Quarter: 2010Q2

REPORT INFORMATION
  Report Type: 
  Country: None (occurrence: None)
  Receive Date: 20100413
  Receipt Date: 20100408
  Transmission Date: 20101027
  Serious: Yes (Death)
  Sender: FDA-Public Use
  Company Number: ES-ABBOTT-10P-144-0637682-00

PATIENT

DRUGS (2)
  1. RITONAVIR [Suspect]
     Indication: ANTIRETROVIRAL THERAPY
  2. ATAZANAVIR [Suspect]
     Indication: ANTIRETROVIRAL THERAPY

REACTIONS (1)
  - LUNG NEOPLASM MALIGNANT [None]
